FAERS Safety Report 11468746 (Version 1)
Quarter: 2015Q3

REPORT INFORMATION
  Report Type: Spontaneous
  Country: US (occurrence: US)
  Receive Date: 20150908
  Receipt Date: 20150908
  Transmission Date: 20151125
  Serious: Yes (Other)
  Sender: FDA-Public Use
  Company Number: US-GLAXOSMITHKLINE-US2015GSK127323

PATIENT
  Age: 54 Year
  Sex: Male

DRUGS (1)
  1. LOVAZA [Suspect]
     Active Substance: OMEGA-3-ACID ETHYL ESTERS
     Indication: CARDIOVASCULAR DISORDER
     Dosage: UNK, U
     Dates: start: 2010

REACTIONS (5)
  - Cardiac pacemaker insertion [Unknown]
  - Fatigue [Unknown]
  - Cardiac failure [Unknown]
  - Bedridden [Unknown]
  - Asthenia [Unknown]

NARRATIVE: CASE EVENT DATE: 201508
